FAERS Safety Report 8104743-8 (Version None)
Quarter: 2012Q1

REPORT INFORMATION
  Report Type: 
  Country: None (occurrence: None)
  Receive Date: 20120130
  Receipt Date: 20120126
  Transmission Date: 20120608
  Serious: Yes (Hospitalization, Other)
  Sender: FDA-Public Use
  Company Number: PHHY2010JP24029

PATIENT
  Sex: Female

DRUGS (9)
  1. PREDNISOLONE [Concomitant]
     Indication: CHRONIC MYELOID LEUKAEMIA
     Dosage: 30 MG, UNK
     Route: 048
     Dates: start: 20060501
  2. METHYCOBAL [Concomitant]
     Indication: RENAL IMPAIRMENT
     Dosage: 150 UG, UNK
     Route: 048
  3. LEVOTHYROXINE SODIUM [Concomitant]
     Indication: RENAL IMPAIRMENT
     Dosage: 50 UG, UNK
     Route: 048
  4. TASIGNA [Suspect]
     Indication: CHRONIC MYELOID LEUKAEMIA
     Dosage: 800 MG, UNK
     Route: 048
     Dates: start: 20091228, end: 20100315
  5. TASIGNA [Suspect]
     Dosage: 400 MG, UNK
     Dates: start: 20100316
  6. ALFAROL [Concomitant]
     Indication: PROPHYLAXIS
     Dosage: 1 UG, UNK
     Route: 048
  7. ALENDRONATE SODIUM [Concomitant]
     Indication: PROPHYLAXIS
     Dosage: 35 MG, UNK
     Route: 048
  8. CEFAZOLIN SODIUM [Concomitant]
     Indication: RENAL IMPAIRMENT
     Dosage: 3 G, UNK
     Route: 048
  9. LANSOPRAZOLE [Concomitant]
     Indication: PROPHYLAXIS
     Dosage: 15 MG, UNK

REACTIONS (5)
  - CARDIAC FAILURE [None]
  - FLUID RETENTION [None]
  - ANAEMIA [None]
  - HYPERGLYCAEMIA [None]
  - PLEURAL EFFUSION [None]
